FAERS Safety Report 24312938 (Version 1)
Quarter: 2024Q3

REPORT INFORMATION
  Report Type: Spontaneous
  Country: US (occurrence: US)
  Receive Date: 20240912
  Receipt Date: 20240912
  Transmission Date: 20241016
  Serious: Yes (Other)
  Sender: MYLAN
  Company Number: US-MYLANLABS-2024M1082508

PATIENT
  Age: 41 Year
  Sex: Male

DRUGS (5)
  1. DOXYCYCLINE [Suspect]
     Active Substance: DOXYCYCLINE\DOXYCYCLINE HYCLATE
     Indication: Pemphigoid
     Dosage: 100 MILLIGRAM, BID
     Route: 065
  2. NIVOLUMAB [Suspect]
     Active Substance: NIVOLUMAB
     Indication: Malignant melanoma stage III
     Dosage: UNK, RECEIVED 12?CYCLES
     Route: 065
  3. NICOTINAMIDE [Suspect]
     Active Substance: NIACINAMIDE
     Indication: Pemphigoid
     Dosage: 500 MILLIGRAM, BID
     Route: 065
  4. RITUXIMAB [Suspect]
     Active Substance: RITUXIMAB
     Indication: Pemphigoid
     Dosage: 375 MILLIGRAM, QW, INITIATED FOR 4 WEEKS.
     Route: 065
  5. PREDNISONE [Concomitant]
     Active Substance: PREDNISONE
     Indication: Pemphigoid
     Dosage: 60 MILLIGRAM, QD
     Route: 065

REACTIONS (2)
  - Drug ineffective for unapproved indication [Unknown]
  - Off label use [Unknown]
